FAERS Safety Report 20013728 (Version 2)
Quarter: 2021Q4

REPORT INFORMATION
  Report Type: Spontaneous
  Country: DE (occurrence: None)
  Receive Date: 20211029
  Receipt Date: 20211103
  Transmission Date: 20220303
  Serious: Yes (Other)
  Sender: FDA-Public Use
  Company Number: DE-MERCK HEALTHCARE KGAA-9275559

PATIENT
  Age: 74 Year

DRUGS (3)
  1. AVELUMAB [Suspect]
     Active Substance: AVELUMAB
     Indication: Bladder transitional cell carcinoma
     Dates: start: 20210216
  2. APIXABAN [Suspect]
     Active Substance: APIXABAN
     Indication: Coagulopathy
  3. ASPIRIN [Suspect]
     Active Substance: ASPIRIN
     Indication: Coagulopathy

REACTIONS (2)
  - Disease progression [Unknown]
  - Haematuria [Unknown]

NARRATIVE: CASE EVENT DATE: 20210101
